FAERS Safety Report 24811972 (Version 1)
Quarter: 2025Q1

REPORT INFORMATION
  Report Type: Spontaneous
  Country: US (occurrence: US)
  Receive Date: 20250106
  Receipt Date: 20250106
  Transmission Date: 20250409
  Serious: No
  Sender: BRAINTREE
  Company Number: US-BRAINTREE LABORATORIES, INC.-2024BTE00252

PATIENT
  Age: 46 Year
  Sex: Female
  Weight: 64.864 kg

DRUGS (16)
  1. SUTAB [Suspect]
     Active Substance: MAGNESIUM SULFATE\POTASSIUM CHLORIDE\SODIUM SULFATE
     Indication: Colonoscopy
     Dosage: 1 X 12 TABLETS, 1X
     Dates: start: 20240422, end: 20240422
  2. MODAFINIL [Concomitant]
     Active Substance: MODAFINIL
  3. ALBUTEROL [Concomitant]
     Active Substance: ALBUTEROL
  4. FLOVENT HFA [Concomitant]
     Active Substance: FLUTICASONE PROPIONATE
  5. AZELASTINE [Concomitant]
     Active Substance: AZELASTINE
  6. CLARITIN [Concomitant]
     Active Substance: LORATADINE
  7. FLEXERIL [Concomitant]
     Active Substance: CYCLOBENZAPRINE HYDROCHLORIDE
  8. HYDREA [Concomitant]
     Active Substance: HYDROXYUREA
  9. VIIBRYD [Concomitant]
     Active Substance: VILAZODONE HYDROCHLORIDE
  10. ZOFRAN [Concomitant]
     Active Substance: ONDANSETRON HYDROCHLORIDE
  11. PHENYLEPHRINE [Concomitant]
     Active Substance: PHENYLEPHRINE
  12. VITAMIN D3 [Concomitant]
     Active Substance: CHOLECALCIFEROL
  13. BORAGE OIL [Concomitant]
     Active Substance: BORAGE OIL
  14. QUERCETIN [Concomitant]
     Active Substance: QUERCETIN
  15. ASPIRIN [Concomitant]
     Active Substance: ASPIRIN
  16. FLUTICASONE [Concomitant]
     Active Substance: FLUTICASONE

REACTIONS (2)
  - Nausea [Recovered/Resolved]
  - Vomiting [Recovered/Resolved]

NARRATIVE: CASE EVENT DATE: 20240422
